FAERS Safety Report 9687974 (Version 2)
Quarter: 2013Q4

REPORT INFORMATION
  Report Type: Report from Study
  Country: TH (occurrence: TH)
  Receive Date: 20131114
  Receipt Date: 20131121
  Transmission Date: 20140711
  Serious: Yes (Death, Hospitalization, Other)
  Sender: FDA-Public Use
  Company Number: PHHY2013TH129854

PATIENT
  Age: 59 Year
  Sex: Female
  Weight: 45.8 kg

DRUGS (1)
  1. GLIVEC [Suspect]
     Indication: GASTROINTESTINAL STROMAL TUMOUR
     Dosage: 400 MG (4 X 100MG ONCE A DAY) FOR 2 WEEKS
     Route: 048

REACTIONS (11)
  - Death [Fatal]
  - Spindle cell sarcoma [Unknown]
  - Second primary malignancy [Unknown]
  - Angiosarcoma metastatic [Unknown]
  - Blood pressure decreased [Unknown]
  - Haemoglobin decreased [Unknown]
  - Platelet count decreased [Unknown]
  - Haematocrit decreased [Unknown]
  - Abdominal discomfort [Unknown]
  - Abdominal pain [Unknown]
  - Heart rate increased [Unknown]
